FAERS Safety Report 14279091 (Version 1)
Quarter: 2017Q4

REPORT INFORMATION
  Report Type: Spontaneous
  Country: US (occurrence: US)
  Receive Date: 20171213
  Receipt Date: 20171213
  Transmission Date: 20180321
  Serious: Yes (Other)
  Sender: FDA-Public Use
  Company Number: US-CIPLA LTD.-2017US22300

PATIENT

DRUGS (7)
  1. IPRATROPIUM BROMIDE. [Suspect]
     Active Substance: IPRATROPIUM BROMIDE
     Indication: RHINITIS ALLERGIC
     Dosage: UNK
     Route: 045
  2. DEXAMETHASONE. [Suspect]
     Active Substance: DEXAMETHASONE
     Indication: RHINITIS ALLERGIC
     Dosage: UNK
     Route: 065
  3. EPINEPHRINE. [Suspect]
     Active Substance: EPINEPHRINE
     Indication: RHINITIS ALLERGIC
     Dosage: UNK
     Route: 045
  4. IBUPROFEN. [Suspect]
     Active Substance: IBUPROFEN
     Indication: RHINITIS ALLERGIC
     Dosage: 0.2ML 1:10V/V
     Route: 065
  5. AFORMOTEROL [Suspect]
     Active Substance: ARFORMOTEROL
     Indication: RHINITIS ALLERGIC
     Dosage: UNK
     Route: 045
  6. CETIRIZINE HYDROCHLORIDE. [Suspect]
     Active Substance: CETIRIZINE HYDROCHLORIDE
     Indication: RHINITIS ALLERGIC
     Dosage: UNK
     Route: 065
  7. DIPHENHYDRAMINE. [Suspect]
     Active Substance: DIPHENHYDRAMINE
     Indication: RHINITIS ALLERGIC
     Dosage: UNK
     Route: 065

REACTIONS (2)
  - Uterine spasm [Recovered/Resolved]
  - Anaphylactic reaction [Recovered/Resolved]
